FAERS Safety Report 4429678-3 (Version None)
Quarter: 2004Q3

REPORT INFORMATION
  Report Type: 
  Country: None (occurrence: None)
  Receive Date: 20040820
  Receipt Date: 20040817
  Transmission Date: 20050211
  Serious: Yes (Disabling)
  Sender: FDA-Public Use
  Company Number: US-MERCK-0408USA01430

PATIENT
  Age: 74 Year
  Sex: Male

DRUGS (11)
  1. COREG [Concomitant]
     Route: 065
  2. PLAVIX [Concomitant]
     Route: 065
  3. FOLTX [Concomitant]
     Route: 065
  4. DIGITEK [Concomitant]
     Route: 065
  5. ZETIA [Suspect]
     Indication: HYPERCHOLESTEROLAEMIA
     Route: 048
     Dates: start: 20030101
  6. HYDRALAZINE [Concomitant]
     Route: 065
  7. LANTUS [Concomitant]
     Route: 065
  8. HUMALOG [Concomitant]
     Route: 065
  9. ISOSORBIDE [Concomitant]
     Route: 065
  10. ANARA [Concomitant]
     Route: 065
  11. TORSEMIDE [Concomitant]
     Route: 065

REACTIONS (3)
  - ARTHRALGIA [None]
  - BACK PAIN [None]
  - MUSCLE SPASMS [None]
